FAERS Safety Report 7489493-3 (Version None)
Quarter: 2011Q2

REPORT INFORMATION
  Report Type: 
  Country: None (occurrence: None)
  Receive Date: 20110518
  Receipt Date: 20110513
  Transmission Date: 20111010
  Serious: Yes (Hospitalization)
  Sender: FDA-Public Use
  Company Number: JP-SANOFI-AVENTIS-2011SA029623

PATIENT
  Age: 46 Year
  Sex: Male
  Weight: 65.1 kg

DRUGS (4)
  1. OXALIPLATIN [Suspect]
     Route: 041
     Dates: start: 20110422, end: 20110422
  2. TS-1 [Suspect]
     Route: 048
     Dates: start: 20110422, end: 20110422
  3. TS-1 [Suspect]
     Indication: GASTRIC CANCER
     Route: 048
     Dates: start: 20110218
  4. OXALIPLATIN [Suspect]
     Indication: GASTRIC CANCER
     Route: 041
     Dates: start: 20110218

REACTIONS (1)
  - HYDRONEPHROSIS [None]
